FAERS Safety Report 18530870 (Version 1)
Quarter: 2020Q4

REPORT INFORMATION
  Report Type: Spontaneous
  Country: US (occurrence: US)
  Receive Date: 20201121
  Receipt Date: 20201121
  Transmission Date: 20210114
  Serious: Yes (Other)
  Sender: FDA-Public Use
  Company Number: US-HYGENIC CORPORATION-2096143

PATIENT
  Sex: Female

DRUGS (1)
  1. BIOFREEZE PATCH MULTI PACK [Suspect]
     Active Substance: MENTHOL
     Indication: ANALGESIC THERAPY
     Route: 061
     Dates: start: 20201114

REACTIONS (3)
  - Dyspnoea [Recovering/Resolving]
  - Hypersensitivity [Recovering/Resolving]
  - Swelling [Recovering/Resolving]

NARRATIVE: CASE EVENT DATE: 20201114
